FAERS Safety Report 6127793-X (Version None)
Quarter: 2009Q1

REPORT INFORMATION
  Report Type: 
  Country: None (occurrence: None)
  Receive Date: 20090320
  Receipt Date: 20090320
  Transmission Date: 20090719
  Serious: Yes (Other)
  Sender: FDA-Public Use
  Company Number: None

PATIENT
  Sex: Female
  Weight: 64.4108 kg

DRUGS (2)
  1. BONIVA [Suspect]
     Indication: OSTEOPOROSIS
     Dosage: 150 MG (1 TABLET) ONCE MONTHLY
     Dates: start: 20090314
  2. BONIVA [Suspect]
     Indication: PROPHYLAXIS
     Dosage: 150 MG (1 TABLET) ONCE MONTHLY
     Dates: start: 20090314

REACTIONS (5)
  - ARTHRALGIA [None]
  - DIZZINESS [None]
  - INFLUENZA LIKE ILLNESS [None]
  - LOSS OF CONSCIOUSNESS [None]
  - PAIN IN EXTREMITY [None]
